FAERS Safety Report 9699121 (Version 1)
Quarter: 2013Q4

REPORT INFORMATION
  Report Type: Spontaneous
  Country: US (occurrence: US)
  Receive Date: 20131120
  Receipt Date: 20131120
  Transmission Date: 20140711
  Serious: Yes (Other)
  Sender: FDA-Public Use
  Company Number: US-BAUSCH-BL-2013-006161

PATIENT
  Sex: Male

DRUGS (1)
  1. PROLENSA (BROMFENAC OPHTHALMIC SOLUTION) 0.07% [Suspect]
     Indication: PRODUCT USED FOR UNKNOWN INDICATION
     Dosage: GTT; OPHTHALMIC
     Route: 047

REACTIONS (1)
  - Cystoid macular oedema [Unknown]
